FAERS Safety Report 4760320-8 (Version None)
Quarter: 2005Q3

REPORT INFORMATION
  Report Type: 
  Country: None (occurrence: None)
  Receive Date: 20050902
  Receipt Date: 20050804
  Transmission Date: 20060218
  Serious: Yes (Death)
  Sender: FDA-Public Use
  Company Number: US-ROCHE-413212

PATIENT
  Age: 69 Year
  Sex: Male
  Weight: 99.8 kg

DRUGS (3)
  1. PEGASYS [Suspect]
     Route: 058
     Dates: start: 20041202, end: 20050603
  2. PEGASYS [Suspect]
     Route: 058
  3. COPEGUS [Suspect]
     Route: 048
     Dates: start: 20041202, end: 20050603

REACTIONS (1)
  - GLIOBLASTOMA MULTIFORME [None]
